FAERS Safety Report 6692239-X (Version None)
Quarter: 2010Q2

REPORT INFORMATION
  Report Type: 
  Country: None (occurrence: None)
  Receive Date: 20100422
  Receipt Date: 20100413
  Transmission Date: 20101027
  Serious: Yes (Hospitalization)
  Sender: FDA-Public Use
  Company Number: US-BAXTER-2010BH007513

PATIENT
  Age: 48 Year
  Sex: Female

DRUGS (1)
  1. DIANEAL [Suspect]
     Indication: PERITONEAL DIALYSIS
     Route: 033
     Dates: start: 20100101

REACTIONS (4)
  - HYPOGLYCAEMIA [None]
  - HYPOKALAEMIA [None]
  - OPEN WOUND [None]
  - SKIN ULCER [None]
